FAERS Safety Report 20657303 (Version 1)
Quarter: 2022Q1

REPORT INFORMATION
  Report Type: Spontaneous
  Country: CA (occurrence: CA)
  Receive Date: 20220331
  Receipt Date: 20220331
  Transmission Date: 20220424
  Serious: Yes (Other)
  Sender: FDA-Public Use
  Company Number: CA-ADVANZ PHARMA-202203001880

PATIENT

DRUGS (1)
  1. PILOCARPINE [Suspect]
     Active Substance: PILOCARPINE
     Indication: Glaucoma
     Dosage: UNK, TABLET

REACTIONS (4)
  - Restlessness [Unknown]
  - Seizure [Unknown]
  - Hyperaemia [Unknown]
  - Hyperhidrosis [Unknown]
